FAERS Safety Report 25735884 (Version 1)
Quarter: 2025Q3

REPORT INFORMATION
  Report Type: Report from Study
  Country: US (occurrence: US)
  Receive Date: 20250828
  Receipt Date: 20250828
  Transmission Date: 20251020
  Serious: Yes (Hospitalization)
  Sender: ROCHE
  Company Number: US-ROCHE-2854853

PATIENT
  Age: 41 Year
  Sex: Female

DRUGS (13)
  1. RITUXAN [Suspect]
     Active Substance: RITUXIMAB
     Indication: Focal dyscognitive seizures
     Dosage: 1000 MG EVERY 4 MONTHS THEREAFTER
     Route: 042
     Dates: start: 2018
  2. RITUXAN [Suspect]
     Active Substance: RITUXIMAB
     Indication: Central nervous system vasculitis
  3. RITUXAN [Suspect]
     Active Substance: RITUXIMAB
     Indication: Arteritis
  4. RITUXAN [Suspect]
     Active Substance: RITUXIMAB
     Indication: Focal dyscognitive seizures
  5. RITUXAN [Suspect]
     Active Substance: RITUXIMAB
     Indication: Vasculitis
  6. VITAMIN C [Concomitant]
     Active Substance: ASCORBIC ACID
  7. VALIUM [Concomitant]
     Active Substance: DIAZEPAM
  8. LEXAPRO [Concomitant]
     Active Substance: ESCITALOPRAM OXALATE
  9. KEPPRA [Concomitant]
     Active Substance: LEVETIRACETAM
  10. TREXALL [Concomitant]
     Active Substance: METHOTREXATE SODIUM
  11. DELTASONE [Concomitant]
     Active Substance: PREDNISONE
  12. ZANTAC [Concomitant]
     Active Substance: RANITIDINE HYDROCHLORIDE
  13. ZONEGRAN [Concomitant]
     Active Substance: ZONISAMIDE

REACTIONS (2)
  - Off label use [Unknown]
  - Meningitis viral [Unknown]

NARRATIVE: CASE EVENT DATE: 20250726
